FAERS Safety Report 5969918-2 (Version None)
Quarter: 2008Q4

REPORT INFORMATION
  Report Type: 
  Country: None (occurrence: None)
  Receive Date: 20081126
  Receipt Date: 20081002
  Transmission Date: 20090506
  Serious: No
  Sender: FDA-Public Use
  Company Number: US-ABBOTT-08P-163-0479585-00

PATIENT
  Sex: Female

DRUGS (6)
  1. SIMCOR [Suspect]
     Indication: BLOOD CHOLESTEROL INCREASED
     Dosage: 500/20MG
     Route: 048
     Dates: start: 20080901
  2. TELMISARTAN [Concomitant]
     Indication: DRUG USE FOR UNKNOWN INDICATION
  3. AMITRIPTYLINE HCL [Concomitant]
     Indication: DRUG USE FOR UNKNOWN INDICATION
  4. PEPCIDDUAL [Concomitant]
     Indication: DRUG USE FOR UNKNOWN INDICATION
  5. TORSEMIDE [Concomitant]
     Indication: DRUG USE FOR UNKNOWN INDICATION
  6. GABAPENTIN [Concomitant]
     Indication: DRUG USE FOR UNKNOWN INDICATION

REACTIONS (1)
  - MYALGIA [None]
